FAERS Safety Report 5359542-7 (Version None)
Quarter: 2007Q2

REPORT INFORMATION
  Report Type: 
  Country: None (occurrence: None)
  Receive Date: 20070615
  Receipt Date: 20070605
  Transmission Date: 20071010
  Serious: Yes (Other)
  Sender: FDA-Public Use
  Company Number: US-PFIZER INC-2007047491

PATIENT
  Sex: Male
  Weight: 90.909 kg

DRUGS (11)
  1. CHANTIX [Suspect]
     Indication: SMOKING CESSATION THERAPY
     Dates: start: 20070529, end: 20070605
  2. CYMBALTA [Concomitant]
  3. LORATADINE [Concomitant]
  4. ASCORBIC ACID [Concomitant]
  5. FLAXSEED OIL [Concomitant]
  6. MICARDIS HCT [Concomitant]
     Dosage: TEXT:80/25 MG
  7. TOPROL-XL [Concomitant]
     Dosage: TEXT:50 MG
  8. FLONASE [Concomitant]
     Route: 045
  9. XANAX [Concomitant]
  10. NORCO [Concomitant]
     Dosage: TEXT:10/325 MG
  11. ALBUTEROL [Concomitant]

REACTIONS (7)
  - ABASIA [None]
  - ARTHRALGIA [None]
  - BACK PAIN [None]
  - JOINT RANGE OF MOTION DECREASED [None]
  - OEDEMA PERIPHERAL [None]
  - PAIN IN EXTREMITY [None]
  - TOOTH ABSCESS [None]
